FAERS Safety Report 15538459 (Version 7)
Quarter: 2019Q3

REPORT INFORMATION
  Report Type: Spontaneous
  Country: TW (occurrence: TW)
  Receive Date: 20181022
  Receipt Date: 20190801
  Transmission Date: 20191004
  Serious: Yes (Hospitalization)
  Sender: FDA-Public Use
  Company Number: TW-PFIZER INC-2018207845

PATIENT
  Age: 36 Year
  Sex: Female

DRUGS (6)
  1. SUTENT [Suspect]
     Active Substance: SUNITINIB MALATE
     Indication: PANCREATIC NEUROENDOCRINE TUMOUR
     Dosage: 37.5 MG, 1X/DAY (QD)
     Route: 048
     Dates: start: 20180417, end: 20180612
  2. SUTENT [Suspect]
     Active Substance: SUNITINIB MALATE
     Dosage: 12.5 MG, 2X/DAY (BID)
     Route: 048
     Dates: start: 20180621, end: 201806
  3. SUTENT [Suspect]
     Active Substance: SUNITINIB MALATE
     Dosage: 37.5 MG, QD
     Route: 048
  4. SUTENT [Suspect]
     Active Substance: SUNITINIB MALATE
     Dosage: 12.5 MG, CYCLIC (TWICE A DAY, 4 DAYS ON AND 3 DAYS OFF)
     Route: 048
     Dates: start: 20180630, end: 20180701
  5. SUTENT [Suspect]
     Active Substance: SUNITINIB MALATE
     Dosage: 12.5 MG, 2X/DAY (BID)
     Dates: start: 20180708, end: 20181013
  6. SUTENT [Suspect]
     Active Substance: SUNITINIB MALATE
     Dosage: 3 DF, 1X/DAY (QD)
     Dates: start: 20181014, end: 20190210

REACTIONS (21)
  - Varices oesophageal [Unknown]
  - Diarrhoea [Not Recovered/Not Resolved]
  - Duodenal ulcer [Unknown]
  - Abdominal pain [Recovered/Resolved]
  - Blood glucose decreased [Recovered/Resolved]
  - Gastric ulcer [Unknown]
  - Faeces discoloured [Recovering/Resolving]
  - Gastrooesophageal reflux disease [Recovered/Resolved]
  - Dermatitis [Recovered/Resolved]
  - Vomiting [Recovered/Resolved]
  - Nausea [Recovered/Resolved]
  - Palmar-plantar erythrodysaesthesia syndrome [Not Recovered/Not Resolved]
  - Fatigue [Recovering/Resolving]
  - Pyrexia [Recovered/Resolved]
  - Nausea [Unknown]
  - Decreased appetite [Recovered/Resolved]
  - Neoplasm progression [Unknown]
  - Asthenia [Not Recovered/Not Resolved]
  - Yellow skin [Not Recovered/Not Resolved]
  - Cold sweat [Unknown]
  - Blood pressure increased [Recovered/Resolved]

NARRATIVE: CASE EVENT DATE: 2018
